FAERS Safety Report 9069032 (Version 1)
Quarter: 2013Q1

REPORT INFORMATION
  Report Type: Spontaneous
  Country: US (occurrence: None)
  Receive Date: 20130213
  Receipt Date: 20130213
  Transmission Date: 20140127
  Serious: No
  Sender: FDA-Public Use
  Company Number: None

PATIENT
  Sex: Female
  Weight: 162.7 kg

DRUGS (1)
  1. PACLITAXEL [Suspect]
     Route: 042

REACTIONS (2)
  - Anaphylactic reaction [None]
  - Convulsion [None]
